FAERS Safety Report 25875389 (Version 1)
Quarter: 2025Q4

REPORT INFORMATION
  Report Type: Spontaneous
  Country: VC (occurrence: US)
  Receive Date: 20251003
  Receipt Date: 20251003
  Transmission Date: 20260118
  Serious: Yes (Hospitalization)
  Sender: CARNEGIE PHARMACEUTICALS LLC
  Company Number: VC-CARNEGIE-000077

PATIENT
  Age: 12 Year
  Sex: Male

DRUGS (1)
  1. CLINDAMYCIN PHOSPHATE [Suspect]
     Active Substance: CLINDAMYCIN PHOSPHATE
     Indication: Cat scratch disease
     Route: 048

REACTIONS (1)
  - Persistent generalised lymphadenopathy [Recovering/Resolving]
